FAERS Safety Report 9337346 (Version 1)
Quarter: 2013Q2

REPORT INFORMATION
  Report Type: Report from Study
  Country: US (occurrence: US)
  Receive Date: 20130607
  Receipt Date: 20130607
  Transmission Date: 20140414
  Serious: Yes (Other)
  Sender: FDA-Public Use
  Company Number: PHEH2013US012309

PATIENT
  Age: 51 Year
  Sex: Male

DRUGS (1)
  1. ZORTRESS [Suspect]
     Dosage: UNK UKN, UNK

REACTIONS (1)
  - Hernia [Unknown]
